FAERS Safety Report 4462892-X (Version None)
Quarter: 2004Q3

REPORT INFORMATION
  Report Type: 
  Country: None (occurrence: None)
  Receive Date: 20040927
  Receipt Date: 20040915
  Transmission Date: 20050211
  Serious: Yes (Other)
  Sender: FDA-Public Use
  Company Number: HQWYE167410AUG04

PATIENT
  Age: 83 Year
  Sex: Male

DRUGS (12)
  1. TAZOCIN (PIPERACILLIN/TAZOBACTAM, INJECTION) [Suspect]
     Indication: PYELONEPHRITIS
     Dosage: SEE IMAGE
     Route: 041
     Dates: start: 20031207, end: 20031207
  2. TAZOCIN (PIPERACILLIN/TAZOBACTAM, INJECTION) [Suspect]
     Indication: PYELONEPHRITIS
     Dosage: SEE IMAGE
     Route: 041
     Dates: start: 20031208, end: 20031212
  3. ASCATE (ASPARTATE POTASSIUM) [Concomitant]
  4. LASIX [Concomitant]
  5. CILOSTAZOL [Concomitant]
  6. FLAVOXATE [Concomitant]
  7. MARZULENE (SODIUM GUALENATE) [Concomitant]
  8. GASTROM (ECABET MONOSODIUM) [Concomitant]
  9. RANITIDINE [Concomitant]
  10. BERAPROST (BERAPROST) [Concomitant]
  11. SPIRONOLACTONE [Concomitant]
  12. FLIVAS (NAFTOPIDIL) [Concomitant]

REACTIONS (2)
  - ANAEMIA [None]
  - CONDITION AGGRAVATED [None]
